FAERS Safety Report 26117149 (Version 1)
Quarter: 2025Q4

REPORT INFORMATION
  Report Type: Spontaneous
  Country: EU (occurrence: EU)
  Receive Date: 20251203
  Receipt Date: 20251203
  Transmission Date: 20260118
  Serious: Yes (Other)
  Sender: PFIZER
  Company Number: EU-PFIZER INC-202500233119

PATIENT
  Age: 50 Year
  Sex: Female

DRUGS (4)
  1. RITUXIMAB [Suspect]
     Active Substance: RITUXIMAB
     Indication: Multiple sclerosis
     Dosage: 6 YEARS,TOTAL ACCUMULATED DOSE OF RITUXIMAB: 12000 MG
  2. RITUXIMAB [Suspect]
     Active Substance: RITUXIMAB
     Dosage: 6 YEARS,TOTAL ACCUMULATED DOSE OF RITUXIMAB: 13000 MG
  3. INTERFERON BETA [Concomitant]
     Active Substance: INTERFERON BETA
     Indication: Multiple sclerosis
     Dosage: 2.5 YEARS
  4. GLATIRAMERACETATE ABZ [Concomitant]
     Indication: Multiple sclerosis
     Dosage: 11.5 YEARS

REACTIONS (5)
  - Infarction [Unknown]
  - Neoehrlichiosis [Unknown]
  - Splenomegaly [Unknown]
  - Hepatomegaly [Unknown]
  - Off label use [Unknown]
